FAERS Safety Report 20098027 (Version 3)
Quarter: 2021Q4

REPORT INFORMATION
  Report Type: Report from Study
  Country: US (occurrence: US)
  Receive Date: 20211122
  Receipt Date: 20211224
  Transmission Date: 20220303
  Serious: Yes (Hospitalization, Other)
  Sender: FDA-Public Use
  Company Number: US-EXELIXIS-CABO-21042658

PATIENT
  Sex: Male
  Weight: 69.9 kg

DRUGS (2)
  1. CABOMETYX [Suspect]
     Active Substance: CABOZANTINIB S-MALATE
     Indication: Renal cancer
     Dosage: 20MG ONCE EVERY OTHER DAY ALTERNATING WITH 40MG ONCE EVERY OTHER DAY
     Route: 048
     Dates: start: 20200301
  2. CABOMETYX [Suspect]
     Active Substance: CABOZANTINIB S-MALATE
     Dosage: 20MG ONCE EVERY OTHER DAY ALTERNATING WITH 40MG ONCE EVERY OTHER DAY
     Route: 048

REACTIONS (9)
  - Haemoglobin decreased [Unknown]
  - Haematocrit decreased [Unknown]
  - Accident [Recovered/Resolved]
  - Arthropathy [Unknown]
  - Humerus fracture [Unknown]
  - Clavicle fracture [Unknown]
  - Neoplasm [Unknown]
  - Blood urine present [Not Recovered/Not Resolved]
  - Diarrhoea [Unknown]
